FAERS Safety Report 9549497 (Version 1)
Quarter: 2013Q3

REPORT INFORMATION
  Report Type: Spontaneous
  Country: US (occurrence: None)
  Receive Date: 20130719
  Receipt Date: 20130719
  Transmission Date: 20140515
  Serious: Yes (Hospitalization)
  Sender: FDA-Public Use
  Company Number: 2012BAX026026

PATIENT
  Age: 59 Year
  Sex: Female
  Weight: 67.77 kg

DRUGS (3)
  1. CYTOXAN [Suspect]
     Indication: CHRONIC LYMPHOCYTIC LEUKAEMIA
     Dosage: 47.619 MG (1000 MG, 1 IN 3)
     Route: 042
     Dates: start: 20120303, end: 20120222
  2. RITUXAN [Suspect]
     Indication: CHRONIC LYMPHOCYTIC LEUKAEMIA
     Dosage: 25 MG (700 MG, 1 IN 4 WK) INTRAVENOUS DRIP
     Route: 041
     Dates: start: 20120203, end: 20120222
  3. PENTOSTATIN [Suspect]
     Indication: CHRONIC LYMPHOCYTIC LEUKAEMIA
     Dosage: 0.3333 MG (7 MG, 1 IN 3 2K) INTRAVEANOUS DRIP
     Route: 041
     Dates: start: 20120203, end: 20120222

REACTIONS (5)
  - Diarrhoea [None]
  - Pyrexia [None]
  - Asthenia [None]
  - Chronic lymphocytic leukaemia transformation [None]
  - B-cell small lymphocytic lymphoma [None]
